FAERS Safety Report 6416925-1 (Version None)
Quarter: 2009Q4

REPORT INFORMATION
  Report Type: 
  Country: None (occurrence: None)
  Receive Date: 20091023
  Receipt Date: 20091012
  Transmission Date: 20100525
  Serious: Yes (Other)
  Sender: FDA-Public Use
  Company Number: A-CH2009-25387

PATIENT
  Age: 35 Year
  Sex: Female

DRUGS (4)
  1. TRACLEER [Suspect]
     Indication: ACCIDENTAL EXPOSURE
  2. ANTIBIOTICS [Concomitant]
  3. METAMIZOLE (METAMIZOLE) [Concomitant]
  4. CONTRACEPTIVES NOS [Concomitant]

REACTIONS (3)
  - ACCIDENTAL EXPOSURE [None]
  - DRUG EXPOSURE DURING PREGNANCY [None]
  - PRODUCT QUALITY ISSUE [None]
